FAERS Safety Report 7428593-0 (Version None)
Quarter: 2011Q2

REPORT INFORMATION
  Report Type: 
  Country: None (occurrence: None)
  Receive Date: 20110421
  Receipt Date: 20101123
  Transmission Date: 20111010
  Serious: No
  Sender: FDA-Public Use
  Company Number: US-BAYER-2010-007395

PATIENT
  Sex: Female

DRUGS (2)
  1. YAZ [Suspect]
     Route: 048
  2. DOMPERIDON [Interacting]
     Indication: GASTRIC HYPOMOTILITY

REACTIONS (1)
  - GASTRIC HYPOMOTILITY [None]
